FAERS Safety Report 8794116 (Version 1)
Quarter: 2012Q4

REPORT INFORMATION
  Report Type: 
  Country: DE (occurrence: DE)
  Receive Date: 20120917
  Receipt Date: 20120917
  Transmission Date: 20130627
  Serious: Yes (Other)
  Sender: FDA-Public Use
  Company Number: PHHY2012DE063151

PATIENT
  Age: 49 Year
  Sex: Female

DRUGS (3)
  1. GILENYA [Suspect]
     Indication: MULTIPLE SCLEROSIS
     Dosage: 0.5 mg, QD
     Route: 048
     Dates: start: 20120708
  2. LYRICA [Concomitant]
     Indication: PAIN
     Dosage: 300 mg, UNK
     Route: 048
     Dates: start: 20080429
  3. CYMBALTA [Concomitant]
     Indication: DEPRESSION
     Dosage: 60 mg, QD
     Route: 048
     Dates: start: 20120420

REACTIONS (3)
  - Platelet count decreased [Recovered/Resolved]
  - White blood cell count decreased [Recovered/Resolved]
  - Lymphocyte count decreased [Not Recovered/Not Resolved]
